FAERS Safety Report 4751663-2 (Version None)
Quarter: 2005Q3

REPORT INFORMATION
  Report Type: 
  Country: None (occurrence: None)
  Receive Date: 20050824
  Receipt Date: 20050818
  Transmission Date: 20060218
  Serious: Yes (Death)
  Sender: FDA-Public Use
  Company Number: PHBS2005RU12037

PATIENT
  Sex: Male

DRUGS (2)
  1. GLEEVEC [Suspect]
     Indication: CHRONIC MYELOID LEUKAEMIA
     Dosage: 200 MG/DAY
     Route: 048
  2. GLEEVEC [Suspect]
     Dosage: 400 MG/DAY
     Route: 048

REACTIONS (11)
  - ANAEMIA [None]
  - BLAST CRISIS IN MYELOGENOUS LEUKAEMIA [None]
  - BLOOD ALKALINE PHOSPHATASE INCREASED [None]
  - BONE MARROW DEPRESSION [None]
  - DRUG RESISTANCE [None]
  - HAEMORRHAGIC DISORDER [None]
  - MALIGNANT NEOPLASM PROGRESSION [None]
  - PYREXIA [None]
  - SPLENOMEGALY [None]
  - THROMBOCYTOPENIA [None]
  - WEIGHT DECREASED [None]
